FAERS Safety Report 7979162-5 (Version None)
Quarter: 2011Q4

REPORT INFORMATION
  Report Type: 
  Country: None (occurrence: None)
  Receive Date: 20111201
  Receipt Date: 20111117
  Transmission Date: 20120403
  Serious: Yes (Death, Life-Threatening)
  Sender: FDA-Public Use
  Company Number: 2011MA016593

PATIENT
  Sex: Female
  Weight: 52.1637 kg

DRUGS (9)
  1. VITAMIN TAB [Concomitant]
  2. DIGOXIN [Suspect]
     Indication: ATRIAL FIBRILLATION
     Dosage: .25 MG;QD;PO
     Route: 048
     Dates: start: 20050819, end: 20080219
  3. FOSPHENYTOIN [Concomitant]
  4. FUROSEMIDE [Concomitant]
  5. POTASSIUM CHLORIDE [Concomitant]
  6. CALCIUM [Concomitant]
  7. WARFARIN SODIUM [Concomitant]
  8. AUGMENTIN [Concomitant]
  9. BACTRIM DS [Concomitant]

REACTIONS (44)
  - MULTIPLE INJURIES [None]
  - CEREBROVASCULAR ACCIDENT [None]
  - IMPAIRED HEALING [None]
  - LEFT VENTRICULAR HYPERTROPHY [None]
  - COUGH [None]
  - COMA SCALE ABNORMAL [None]
  - BRAIN COMPRESSION [None]
  - DECREASED APPETITE [None]
  - CARDIAC DISORDER [None]
  - MENTAL STATUS CHANGES [None]
  - CARDIAC MURMUR [None]
  - CEREBRAL HAEMORRHAGE [None]
  - PUPILLARY REFLEX IMPAIRED [None]
  - FATIGUE [None]
  - CARDIOACTIVE DRUG LEVEL BELOW THERAPEUTIC [None]
  - SKIN NECROSIS [None]
  - HYPERTENSION [None]
  - UNRESPONSIVE TO STIMULI [None]
  - INTERNATIONAL NORMALISED RATIO INCREASED [None]
  - DEPRESSED LEVEL OF CONSCIOUSNESS [None]
  - MALAISE [None]
  - ASTHENIA [None]
  - JOINT SWELLING [None]
  - LACERATION [None]
  - HEMIPARESIS [None]
  - FLUSHING [None]
  - AORTIC BRUIT [None]
  - WOUND COMPLICATION [None]
  - ELECTROCARDIOGRAM ST-T SEGMENT ABNORMAL [None]
  - UNEVALUABLE EVENT [None]
  - DYSPNOEA EXERTIONAL [None]
  - RESPIRATION ABNORMAL [None]
  - DECREASED INTEREST [None]
  - ACTIVITIES OF DAILY LIVING IMPAIRED [None]
  - HAEMORRHAGE INTRACRANIAL [None]
  - HAEMATOMA INFECTION [None]
  - SPEECH DISORDER [None]
  - CARDIOMEGALY [None]
  - DYSPNOEA [None]
  - WOUND [None]
  - EXTENSOR PLANTAR RESPONSE [None]
  - AREFLEXIA [None]
  - ATRIAL FIBRILLATION [None]
  - BLOOD GLUCOSE INCREASED [None]
